FAERS Safety Report 7426306-X (Version None)
Quarter: 2011Q2

REPORT INFORMATION
  Report Type: 
  Country: None (occurrence: None)
  Receive Date: 20110420
  Receipt Date: 20110413
  Transmission Date: 20111010
  Serious: Yes (Hospitalization)
  Sender: FDA-Public Use
  Company Number: A0923638A

PATIENT
  Sex: Male

DRUGS (2)
  1. ARIXTRA [Suspect]
     Dosage: 10MG UNKNOWN
     Route: 058
     Dates: start: 20110201
  2. ZOFRAN [Suspect]
     Dosage: 8MG UNKNOWN
     Route: 048
     Dates: start: 20110201

REACTIONS (3)
  - JUGULAR VEIN THROMBOSIS [None]
  - NECK PAIN [None]
  - HERNIA [None]
